FAERS Safety Report 21235890 (Version 1)
Quarter: 2022Q3

REPORT INFORMATION
  Report Type: Spontaneous
  Country: US (occurrence: None)
  Receive Date: 20220821
  Receipt Date: 20220821
  Transmission Date: 20221027
  Serious: Yes (Other)
  Sender: FDA-Public Use
  Company Number: 2022A256679

PATIENT
  Sex: Female

DRUGS (1)
  1. EVUSHELD [Suspect]
     Active Substance: CILGAVIMAB\TIXAGEVIMAB
     Indication: Immune system disorder
     Dosage: ONCE/SINGLE ADMINISTRATION
     Route: 030

REACTIONS (2)
  - Angioedema [Unknown]
  - COVID-19 [Recovered/Resolved]
